FAERS Safety Report 12664768 (Version 1)
Quarter: 2016Q3

REPORT INFORMATION
  Report Type: Spontaneous
  Country: BR (occurrence: BR)
  Receive Date: 20160818
  Receipt Date: 20160818
  Transmission Date: 20161109
  Serious: Yes (Other)
  Sender: FDA-Public Use
  Company Number: BR-PFIZER INC-2016390047

PATIENT
  Age: 48 Year
  Sex: Female
  Weight: 100 kg

DRUGS (4)
  1. FLUOXETINE [Concomitant]
     Active Substance: FLUOXETINE HYDROCHLORIDE
     Indication: ANXIETY
     Dosage: 40 MG, 2 TABLETS OF 20MG PER DAY
     Route: 048
     Dates: start: 2016
  2. GEODON [Suspect]
     Active Substance: ZIPRASIDONE HYDROCHLORIDE\ZIPRASIDONE MESYLATE
     Dosage: 80 MG, 1 CAPSULE OF 80MG AT NIGHT
     Route: 048
     Dates: start: 20160515, end: 20160615
  3. GEODON [Suspect]
     Active Substance: ZIPRASIDONE HYDROCHLORIDE\ZIPRASIDONE MESYLATE
     Indication: GENERALISED ANXIETY DISORDER
     Dosage: 40 MG, 1 CAPSULE OF 40MG PER DAY
     Route: 048
  4. PAMELOR [Concomitant]
     Active Substance: NORTRIPTYLINE HYDROCHLORIDE
     Indication: ANXIETY
     Dosage: 25 MG, 1 TABLET OF 25MG PER DAY
     Route: 048
     Dates: start: 201606

REACTIONS (2)
  - Sudden onset of sleep [Unknown]
  - Malaise [Unknown]

NARRATIVE: CASE EVENT DATE: 2016
